FAERS Safety Report 4539617-2 (Version None)
Quarter: 2004Q4

REPORT INFORMATION
  Report Type: 
  Country: None (occurrence: None)
  Receive Date: 20041228
  Receipt Date: 20041222
  Transmission Date: 20050328
  Serious: Yes (Death, Hospitalization)
  Sender: FDA-Public Use
  Company Number: PHBS2004JP17278

PATIENT
  Age: 42 Year
  Sex: Male

DRUGS (1)
  1. CYCLOSPORINE [Suspect]
     Indication: LIVER TRANSPLANT
     Route: 048
     Dates: start: 20030615, end: 20030101

REACTIONS (7)
  - CONDITION AGGRAVATED [None]
  - CYTOMEGALOVIRUS ENTEROCOLITIS [None]
  - DIABETIC KETOACIDOSIS [None]
  - HEPATIC ARTERY OCCLUSION [None]
  - INTRA-ABDOMINAL HAEMORRHAGE [None]
  - OESOPHAGEAL VARICES HAEMORRHAGE [None]
  - PANCREATITIS ACUTE [None]
